FAERS Safety Report 9421402 (Version 1)
Quarter: 2013Q3

REPORT INFORMATION
  Report Type: Spontaneous
  Country: GB (occurrence: GB)
  Receive Date: 20130725
  Receipt Date: 20130725
  Transmission Date: 20140515
  Serious: Yes (Life-Threatening, Hospitalization, Other)
  Sender: FDA-Public Use
  Company Number: PHHY2013GB077621

PATIENT
  Age: 67 Year
  Sex: Male
  Weight: 65 kg

DRUGS (10)
  1. ATORVASTATIN [Suspect]
     Indication: HYPERCHOLESTEROLAEMIA
     Dosage: 80 MG, QD AT NIGHT
     Route: 048
     Dates: end: 20120425
  2. PERINDOPRIL [Suspect]
     Indication: HYPERTENSION
     Dosage: 8 MG, QD
     Route: 048
     Dates: end: 20120426
  3. CLOPIDOGREL [Suspect]
     Indication: ANTIPLATELET THERAPY
     Dosage: 75 MG, QD
     Route: 048
     Dates: end: 20120426
  4. ACETYLSALICYLIC ACID [Suspect]
     Indication: ANTIPLATELET THERAPY
     Dosage: 75 MG, QD
     Route: 048
     Dates: end: 20120426
  5. EZETIMIBE [Suspect]
     Indication: HYPERCHOLESTEROLAEMIA
     Dosage: 10 MG, QD AT NIGHT
     Route: 048
     Dates: end: 20120426
  6. ALLOPURINOL [Suspect]
     Indication: GOUT
     Dosage: 300 MG, QD
     Route: 048
     Dates: end: 20120426
  7. OMACOR [Suspect]
     Indication: HYPERCHOLESTEROLAEMIA
     Route: 048
     Dates: end: 20120426
  8. ATAZANAVIR [Suspect]
     Indication: HIV INFECTION
     Dosage: 300 MG, QD
     Route: 048
     Dates: start: 201103, end: 20110326
  9. RITONAVIR [Suspect]
     Indication: HIV INFECTION
     Dosage: 100 MG, QD
     Route: 048
     Dates: start: 201103, end: 20120426
  10. TRUVADA [Suspect]
     Indication: HIV INFECTION
     Dosage: 1 DF, QD
     Route: 048
     Dates: start: 201103, end: 20120426

REACTIONS (1)
  - Thrombocytopenia [Not Recovered/Not Resolved]
